FAERS Safety Report 7340410-6 (Version None)
Quarter: 2011Q1

REPORT INFORMATION
  Report Type: 
  Country: None (occurrence: None)
  Receive Date: 20110228
  Receipt Date: 20110221
  Transmission Date: 20110831
  Serious: Yes (Death, Hospitalization)
  Sender: FDA-Public Use
  Company Number: 2011SP006716

PATIENT
  Age: 64 Year
  Sex: Female

DRUGS (17)
  1. TEMODAL [Suspect]
     Indication: GLIOBLASTOMA MULTIFORME
     Dosage: 140 MG;QD;PO
     Route: 048
     Dates: start: 20101020, end: 20101110
  2. BETOLVEX [Concomitant]
  3. PARACET [Concomitant]
  4. OXYCODONE RATIOPHARM [Concomitant]
  5. ACTIVELLE [Concomitant]
  6. LEVOTHYROXINE SODIUM [Concomitant]
  7. GLUCOPHAGE [Concomitant]
  8. WARFARIN SODIUM [Concomitant]
  9. IMODIUM [Concomitant]
  10. SELO-ZOK [Concomitant]
  11. KEPPRA [Concomitant]
  12. AFIPRAN [Concomitant]
  13. ONDANSETRON [Concomitant]
  14. OXYCONTNI [Concomitant]
  15. SOBRIL [Concomitant]
  16. IMOVANE [Concomitant]
  17. MEDROL [Concomitant]

REACTIONS (2)
  - BONE MARROW FAILURE [None]
  - SEPSIS [None]
